FAERS Safety Report 12391037 (Version 1)
Quarter: 2016Q2

REPORT INFORMATION
  Report Type: Spontaneous
  Country: CH (occurrence: CH)
  Receive Date: 20160520
  Receipt Date: 20160520
  Transmission Date: 20160815
  Serious: Yes (Other)
  Sender: FDA-Public Use
  Company Number: CH-GILEAD-2016-0213664

PATIENT

DRUGS (1)
  1. ZYDELIG [Suspect]
     Active Substance: IDELALISIB
     Indication: MANTLE CELL LYMPHOMA
     Dosage: 150 MG, UNK
     Route: 048
     Dates: start: 20151116, end: 20160330

REACTIONS (2)
  - Disease progression [Unknown]
  - Off label use [Recovered/Resolved]
